FAERS Safety Report 14199406 (Version 2)
Quarter: 2018Q1

REPORT INFORMATION
  Report Type: Spontaneous
  Country: NO (occurrence: NO)
  Receive Date: 20171117
  Receipt Date: 20180124
  Transmission Date: 20180508
  Serious: Yes (Disabling)
  Sender: FDA-Public Use
  Company Number: NO-009507513-1711NOR002907

PATIENT
  Sex: Female
  Weight: 90 kg

DRUGS (1)
  1. ATOZET [Suspect]
     Active Substance: ATORVASTATIN CALCIUM\EZETIMIBE
     Indication: BLOOD CHOLESTEROL INCREASED
     Dosage: 1 TABLET IN THE MORNING, CHANGED BY THE DOCTOR TO 1 TABLET BY NIGHT/BEDTIME
     Dates: start: 20170215, end: 20170615

REACTIONS (17)
  - Tinnitus [Not Recovered/Not Resolved]
  - Deafness [Not Recovered/Not Resolved]
  - Gait disturbance [Recovered/Resolved with Sequelae]
  - Abdominal pain [Recovering/Resolving]
  - Musculoskeletal chest pain [Recovered/Resolved with Sequelae]
  - Neck pain [Recovered/Resolved with Sequelae]
  - Pain [Recovered/Resolved with Sequelae]
  - Deafness [Recovered/Resolved with Sequelae]
  - Myalgia [Recovering/Resolving]
  - Headache [Recovering/Resolving]
  - Dysstasia [Recovered/Resolved with Sequelae]
  - Dizziness [Recovering/Resolving]
  - Myalgia [Recovered/Resolved with Sequelae]
  - Pruritus generalised [Recovering/Resolving]
  - Cough [Not Recovered/Not Resolved]
  - Back pain [Recovered/Resolved with Sequelae]
  - Insomnia [Recovered/Resolved with Sequelae]
